FAERS Safety Report 5296470-X (Version None)
Quarter: 2007Q2

REPORT INFORMATION
  Report Type: 
  Country: None (occurrence: None)
  Receive Date: 20070413
  Receipt Date: 20070404
  Transmission Date: 20071010
  Serious: Yes (Hospitalization)
  Sender: FDA-Public Use
  Company Number: ES-SANOFI-SYNTHELABO-A01200703715

PATIENT
  Age: 54 Year
  Sex: Female

DRUGS (4)
  1. CITALOPRAM HYDROBROMIDE [Concomitant]
     Indication: DRUG USE FOR UNKNOWN INDICATION
     Route: 048
  2. ZOLPIDEM [Suspect]
     Indication: DRUG DEPENDENCE
     Dosage: 100 TO 200 MG DAILLY
     Route: 048
  3. ZOLPIDEM [Suspect]
     Indication: SLEEP DISORDER
     Dosage: 100 TO 200 MG DAILLY
     Route: 048
  4. ZOLPIDEM [Suspect]
     Indication: ANXIOLYTIC THERAPY
     Dosage: 100 TO 200 MG DAILLY
     Route: 048

REACTIONS (14)
  - AMNESIA [None]
  - DELIRIUM [None]
  - DRUG ABUSER [None]
  - DRUG DEPENDENCE [None]
  - DRUG TOLERANCE [None]
  - DRUG WITHDRAWAL CONVULSIONS [None]
  - DRUG WITHDRAWAL SYNDROME [None]
  - HYPERHIDROSIS [None]
  - MALAISE [None]
  - NAUSEA [None]
  - NEGATIVISM [None]
  - TACHYCARDIA [None]
  - TREMOR [None]
  - VOMITING [None]
